FAERS Safety Report 6978446-7 (Version None)
Quarter: 2010Q3

REPORT INFORMATION
  Report Type: 
  Country: None (occurrence: None)
  Receive Date: 20100913
  Receipt Date: 20100901
  Transmission Date: 20110219
  Serious: Yes (Hospitalization, Other)
  Sender: FDA-Public Use
  Company Number: US-AMGEN-QUU428862

PATIENT
  Sex: Male
  Weight: 66.8 kg

DRUGS (9)
  1. NPLATE [Suspect]
     Indication: IDIOPATHIC THROMBOCYTOPENIC PURPURA
     Route: 058
     Dates: start: 20090114
  2. CORTICOSTEROIDS [Concomitant]
     Dates: start: 19990422
  3. PACERONE (UPSHER-SMITH LAB) [Concomitant]
     Route: 048
  4. TENORMIN [Concomitant]
     Route: 048
  5. MIRALAX [Concomitant]
  6. PREDNISONE [Concomitant]
  7. FOSAMAX [Concomitant]
  8. MULTI-VITAMINS [Concomitant]
  9. CALCIUM [Concomitant]

REACTIONS (8)
  - CEREBELLAR HAEMORRHAGE [None]
  - DYSPNOEA EXERTIONAL [None]
  - GAIT DISTURBANCE [None]
  - INCREASED TENDENCY TO BRUISE [None]
  - ISCHAEMIC STROKE [None]
  - SLEEP APNOEA SYNDROME [None]
  - SOMNOLENCE [None]
  - WEIGHT DECREASED [None]
